FAERS Safety Report 25950291 (Version 1)
Quarter: 2025Q4

REPORT INFORMATION
  Report Type: Spontaneous
  Country: EU (occurrence: EU)
  Receive Date: 20251022
  Receipt Date: 20251022
  Transmission Date: 20260117
  Serious: Yes (Other)
  Sender: SANOFI AVENTIS
  Company Number: EU-SANOFI-02690969

PATIENT
  Age: 2 Month
  Sex: Female
  Weight: 5.5 kg

DRUGS (1)
  1. BEYFORTUS [Suspect]
     Active Substance: NIRSEVIMAB-ALIP
     Indication: Immunisation
     Dosage: 100 MG, 1X
     Dates: start: 202510, end: 202510

REACTIONS (2)
  - Circulatory collapse [Recovering/Resolving]
  - Infantile apnoea [Recovering/Resolving]

NARRATIVE: CASE EVENT DATE: 20251001
